FAERS Safety Report 5263918-6 (Version None)
Quarter: 2007Q1

REPORT INFORMATION
  Report Type: 
  Country: None (occurrence: None)
  Receive Date: 20070313
  Receipt Date: 20070305
  Transmission Date: 20070707
  Serious: Yes (Other)
  Sender: FDA-Public Use
  Company Number: US-ELI_LILLY_AND_COMPANY-US200703001182

PATIENT
  Age: 77 Year
  Sex: Male

DRUGS (2)
  1. HUMULIN 70/30 [Suspect]
     Indication: DIABETES MELLITUS
     Dosage: UNK, EACH EVENING
     Dates: start: 20050101
  2. HUMULIN N [Suspect]
     Indication: DIABETES MELLITUS
     Dosage: UNK, EACH MORNING
     Dates: start: 19770101

REACTIONS (4)
  - CONFUSIONAL STATE [None]
  - DIZZINESS [None]
  - HYPERHIDROSIS [None]
  - LOSS OF CONSCIOUSNESS [None]
